FAERS Safety Report 19504618 (Version 3)
Quarter: 2021Q3

REPORT INFORMATION
  Report Type: Spontaneous
  Country: IE (occurrence: IE)
  Receive Date: 20210707
  Receipt Date: 20210923
  Transmission Date: 20211014
  Serious: Yes (Other)
  Sender: FDA-Public Use
  Company Number: IE-EMD SERONO-9250326

PATIENT

DRUGS (1)
  1. MAVENCLAD [Suspect]
     Active Substance: CLADRIBINE
     Indication: MULTIPLE SCLEROSIS

REACTIONS (1)
  - Foetal monitoring abnormal [Recovered/Resolved]

NARRATIVE: CASE EVENT DATE: 20210702
